FAERS Safety Report 4427966-8 (Version None)
Quarter: 2004Q3

REPORT INFORMATION
  Report Type: 
  Country: None (occurrence: None)
  Receive Date: 20040726
  Receipt Date: 20040225
  Transmission Date: 20050211
  Serious: No
  Sender: FDA-Public Use
  Company Number: USA030639394

PATIENT
  Age: 61 Year
  Sex: Female
  Weight: 68 kg

DRUGS (12)
  1. FORTEO [Suspect]
     Indication: OSTEOPOROSIS
     Dosage: 20 UG/DAY
     Dates: start: 20030226
  2. TRACLEER [Concomitant]
  3. COUMADIN [Concomitant]
  4. LASIX [Concomitant]
  5. TOPROL XL (METORPOLOL SUCCINATE) [Concomitant]
  6. K-DUR 10 [Concomitant]
  7. NORVASC [Concomitant]
  8. NEURONTIN [Concomitant]
  9. CLONOPIN (CLONAZEPAM) [Concomitant]
  10. CALCIUM [Concomitant]
  11. VITAMIN E [Concomitant]
  12. MULTI-VITAMIN [Concomitant]

REACTIONS (6)
  - ALOPECIA [None]
  - FATIGUE [None]
  - MUSCULAR WEAKNESS [None]
  - MUSCULOSKELETAL PAIN [None]
  - OEDEMA PERIPHERAL [None]
  - PAIN [None]
